FAERS Safety Report 10006224 (Version 1)
Quarter: 2014Q1

REPORT INFORMATION
  Report Type: Spontaneous
  Country: US (occurrence: US)
  Receive Date: 20140313
  Receipt Date: 20140313
  Transmission Date: 20141002
  Serious: Yes (Other)
  Sender: FDA-Public Use
  Company Number: US-PFIZER INC-2014072019

PATIENT
  Sex: Male

DRUGS (4)
  1. LYRICA [Suspect]
     Dosage: 150 MG, 2X/DAY
     Dates: start: 2010
  2. LYRICA [Suspect]
     Dosage: 300 MG, 2X/DAY
  3. AMLODIPINE BESYLATE [Concomitant]
     Indication: HYPERTENSION
     Dosage: 10 MG, UNK
  4. LISINOPRIL [Concomitant]
     Indication: HYPERTENSION
     Dosage: 25 MG, UNK

REACTIONS (4)
  - Back disorder [Unknown]
  - Diabetic neuropathy [Unknown]
  - Neuralgia [Unknown]
  - Neuropathy peripheral [Unknown]
